FAERS Safety Report 11954374 (Version 1)
Quarter: 2016Q1

REPORT INFORMATION
  Report Type: Report from Study
  Country: US (occurrence: US)
  Receive Date: 20160125
  Receipt Date: 20160125
  Transmission Date: 20160526
  Serious: No
  Sender: FDA-Public Use
  Company Number: US-ABBVIE-15K-163-1336986-00

PATIENT
  Sex: Male

DRUGS (1)
  1. HUMIRA [Suspect]
     Active Substance: ADALIMUMAB
     Indication: RHEUMATOID ARTHRITIS
     Route: 065

REACTIONS (5)
  - Exposure to contaminated water [Not Recovered/Not Resolved]
  - Tooth loss [Unknown]
  - Tooth fracture [Recovered/Resolved]
  - Arthritis [Not Recovered/Not Resolved]
  - Amnesia [Not Recovered/Not Resolved]
